FAERS Safety Report 18556540 (Version 1)
Quarter: 2020Q4

REPORT INFORMATION
  Report Type: Spontaneous
  Country: ZA (occurrence: ZA)
  Receive Date: 20201128
  Receipt Date: 20201128
  Transmission Date: 20210114
  Serious: Yes (Other)
  Sender: FDA-Public Use
  Company Number: ZA-009507513-2011ZAF016061

PATIENT
  Age: 52 Year
  Sex: Female

DRUGS (1)
  1. KEYTRUDA [Suspect]
     Active Substance: PEMBROLIZUMAB
     Indication: MALIGNANT MELANOMA
     Dosage: UNK

REACTIONS (5)
  - Helminthic infection [Unknown]
  - Anastomotic leak [Unknown]
  - Neuropathy peripheral [Unknown]
  - Intestinal pseudo-obstruction [Unknown]
  - Myositis [Unknown]
